FAERS Safety Report 8216476-8 (Version None)
Quarter: 2012Q1

REPORT INFORMATION
  Report Type: 
  Country: None (occurrence: None)
  Receive Date: 20120316
  Receipt Date: 20120302
  Transmission Date: 20120608
  Serious: Yes (Hospitalization, Congenital Anomaly)
  Sender: FDA-Public Use
  Company Number: JP-PFIZER INC-2008150256

PATIENT
  Age: 35 Year
  Sex: Female

DRUGS (27)
  1. PREDNISOLONE [Suspect]
     Dosage: 30 MG, 1X/DAY
     Route: 048
     Dates: start: 20070817, end: 20071206
  2. PREDNISOLONE [Suspect]
     Dosage: 20 MG, 1X/DAY
     Route: 048
     Dates: start: 20080712
  3. ONE-ALPHA [Suspect]
     Dosage: 0.5 UG, 1X/DAY
     Route: 048
  4. LOSARTAN POTASSIUM [Suspect]
     Dosage: 50 MG, 1X/DAY
     Route: 048
     Dates: start: 20080305, end: 20090911
  5. REMICADE [Suspect]
     Dosage: 200 MG, 1X/DAY
     Route: 048
     Dates: start: 20080314, end: 20080314
  6. PREDNISOLONE [Concomitant]
     Dosage: 40 MG, 1X/DAY
     Route: 048
     Dates: start: 20090808, end: 20091009
  7. LIPITOR [Suspect]
     Dosage: 10 MG, 1X/DAY
     Route: 048
     Dates: start: 20090912
  8. LOSARTAN POTASSIUM [Suspect]
     Indication: HYPERTENSION
     Dosage: 25 MG, 1X/DAY
     Route: 048
     Dates: end: 20080304
  9. PREDNISOLONE [Concomitant]
     Dosage: 25 MG, 1X/DAY
     Route: 048
     Dates: start: 20100403
  10. LIPITOR [Suspect]
     Indication: HYPERLIPIDAEMIA
     Dosage: 5 MG, 1X/DAY
     Route: 048
     Dates: end: 20090911
  11. PROGRAF [Suspect]
     Dosage: 3 MG, 1X/DAY
     Dates: start: 20070531
  12. LOSARTAN POTASSIUM AND HYDROCHLOROTHIAZIDE [Concomitant]
     Indication: HYPERTENSION
  13. REMICADE [Suspect]
     Indication: LUPUS NEPHRITIS
     Dosage: 200 MG, 1X/DAY
     Route: 048
     Dates: start: 20080229, end: 20080229
  14. PREDNISOLONE [Suspect]
     Indication: LUPUS NEPHRITIS
     Dosage: 10-20 MG, ALTERNATE DAY
     Route: 048
     Dates: end: 20070816
  15. PREDNISOLONE [Suspect]
     Dosage: 30 MG, 1X/DAY
     Route: 048
     Dates: start: 20080105, end: 20080509
  16. ISONIAZID [Suspect]
     Indication: PROPHYLAXIS
     Dosage: 300 MG, 1X/DAY
     Route: 048
     Dates: start: 20080229, end: 20080711
  17. PREDNISOLONE [Concomitant]
     Dosage: 30MG OR 25MG/ALTERNATE DAY
     Route: 048
     Dates: start: 20100116, end: 20100402
  18. PROGRAF [Suspect]
     Indication: LUPUS NEPHRITIS
     Dosage: 2 MG, 1X/DAY
     Dates: start: 20070419, end: 20070530
  19. PREDNISOLONE [Suspect]
     Dosage: 25 MG, 1X/DAY
     Route: 048
     Dates: start: 20071207, end: 20080104
  20. PREDNISOLONE [Concomitant]
     Dosage: 35 MG, 1X/DAY
     Route: 048
     Dates: start: 20091010, end: 20091106
  21. LOSARTAN POTASSIUM AND HYDROCHLOROTHIAZIDE [Concomitant]
     Indication: LUPUS NEPHRITIS
     Dosage: 1 DF, 1X/DAY
     Route: 048
     Dates: start: 20090912
  22. PREDNISOLONE [Suspect]
     Dosage: 25 MG, 1X/DAY
     Route: 048
     Dates: start: 20080509, end: 20080711
  23. TAGAMET [Suspect]
     Dosage: 200 MG, 1X/DAY
     Route: 048
     Dates: end: 20080309
  24. PREDNISOLONE [Concomitant]
     Dosage: 20 MG, 1X/DAY
     Route: 048
     Dates: start: 20080712, end: 20090212
  25. REMICADE [Suspect]
     Dosage: 200 MG, 1X/DAY
     Route: 048
     Dates: start: 20080410, end: 20080410
  26. PREDNISOLONE [Concomitant]
     Dosage: 30 MG, 1X/DAY
     Route: 048
     Dates: start: 20090213, end: 20090807
  27. PREDNISOLONE [Concomitant]
     Dosage: 30 MG, 1X/DAY
     Route: 048
     Dates: start: 20091107, end: 20100115

REACTIONS (1)
  - ABORTION MISSED [None]
